FAERS Safety Report 20716954 (Version 1)
Quarter: 2022Q2

REPORT INFORMATION
  Report Type: Spontaneous
  Country: US (occurrence: US)
  Receive Date: 20220416
  Receipt Date: 20220416
  Transmission Date: 20220721
  Serious: No
  Sender: FDA-Public Use
  Company Number: US-ELI_LILLY_AND_COMPANY-US202204007505

PATIENT
  Age: 59 Year
  Sex: Female

DRUGS (1)
  1. BASAGLAR [Suspect]
     Active Substance: INSULIN GLARGINE
     Indication: Type 2 diabetes mellitus
     Dosage: 48 U, UNKNOWN
     Route: 058

REACTIONS (4)
  - Back pain [Unknown]
  - Blood glucose increased [Unknown]
  - Blood urine present [Unknown]
  - Malaise [Unknown]

NARRATIVE: CASE EVENT DATE: 20220401
